FAERS Safety Report 19698774 (Version 4)
Quarter: 2021Q4

REPORT INFORMATION
  Report Type: Spontaneous
  Country: US (occurrence: US)
  Receive Date: 20210813
  Receipt Date: 20211011
  Transmission Date: 20220303
  Serious: Yes (Other)
  Sender: FDA-Public Use
  Company Number: US-KYOWAKIRIN-2021BKK013770

PATIENT

DRUGS (3)
  1. POTELIGEO [Suspect]
     Active Substance: MOGAMULIZUMAB-KPKC
     Indication: Cutaneous T-cell lymphoma
     Dosage: 75 MG, DAY 1,8,15,22
     Route: 042
     Dates: start: 20210611, end: 202106
  2. POTELIGEO [Suspect]
     Active Substance: MOGAMULIZUMAB-KPKC
     Indication: Peripheral T-cell lymphoma unspecified
     Dosage: 75 MG, 1X/2 WEEKS
     Route: 042
     Dates: start: 20210604, end: 2021
  3. POTELIGEO [Suspect]
     Active Substance: MOGAMULIZUMAB-KPKC
     Dosage: 3 DOSES IN 3 WEEKS
     Route: 065
     Dates: start: 20210708, end: 20210729

REACTIONS (9)
  - Disease progression [Not Recovered/Not Resolved]
  - Blister [Unknown]
  - Pruritus [Recovering/Resolving]
  - Skin weeping [Unknown]
  - Dermatitis acneiform [Not Recovered/Not Resolved]
  - Rash erythematous [Not Recovered/Not Resolved]
  - Rash papular [Not Recovered/Not Resolved]
  - Rash [Not Recovered/Not Resolved]
  - Drug ineffective [Unknown]

NARRATIVE: CASE EVENT DATE: 20210601
